FAERS Safety Report 5322975-9 (Version None)
Quarter: 2007Q2

REPORT INFORMATION
  Report Type: 
  Country: None (occurrence: None)
  Receive Date: 20070215
  Receipt Date: 20061101
  Transmission Date: 20071010
  Serious: Yes (Other)
  Sender: FDA-Public Use
  Company Number: 200614760BWH

PATIENT
  Age: 60 Year
  Sex: Male
  Weight: 92.9874 kg

DRUGS (6)
  1. NEXAVAR [Suspect]
     Indication: METASTATIC RENAL CELL CARCINOMA
     Dosage: SEE IMAGE
     Route: 048
     Dates: start: 20060715, end: 20060719
  2. NEXAVAR [Suspect]
     Indication: METASTATIC RENAL CELL CARCINOMA
     Dosage: SEE IMAGE
     Route: 048
     Dates: start: 20060721
  3. MICARDIS [Concomitant]
  4. ZOCOR [Concomitant]
  5. MICARDIS [Concomitant]
  6. DARVOCET [Concomitant]

REACTIONS (21)
  - ABDOMINAL PAIN [None]
  - ALOPECIA [None]
  - AURICULAR SWELLING [None]
  - BLISTER [None]
  - BURNING SENSATION [None]
  - DECREASED APPETITE [None]
  - DENTAL CARIES [None]
  - DEPRESSION [None]
  - DIARRHOEA [None]
  - DRY SKIN [None]
  - EAR PAIN [None]
  - HYPERTENSION [None]
  - INSOMNIA [None]
  - MUSCLE SPASMS [None]
  - NEOPLASM SKIN [None]
  - PRURITUS [None]
  - RASH [None]
  - SINUS DISORDER [None]
  - SKIN PAPILLOMA [None]
  - SWELLING FACE [None]
  - WEIGHT DECREASED [None]
